FAERS Safety Report 21830068 (Version 1)
Quarter: 2023Q1

REPORT INFORMATION
  Report Type: Spontaneous
  Country: GB (occurrence: GB)
  Receive Date: 20230106
  Receipt Date: 20230106
  Transmission Date: 20230418
  Serious: Yes (Life-Threatening)
  Sender: FDA-Public Use
  Company Number: GB-MHRA-MED-202301041344286140-KYPRJ

PATIENT
  Age: 40 Year
  Sex: Female

DRUGS (1)
  1. GABAPENTIN [Suspect]
     Active Substance: GABAPENTIN
     Indication: Restless legs syndrome
     Dosage: 1 DOSAGE FORM, TID (3 TIMES PER DAY)
     Route: 065

REACTIONS (1)
  - Haematemesis [Recovered/Resolved]
